FAERS Safety Report 9077747 (Version 3)
Quarter: 2014Q2

REPORT INFORMATION
  Report Type: Spontaneous
  Country: US (occurrence: US)
  Receive Date: 20130130
  Receipt Date: 20140404
  Transmission Date: 20141212
  Serious: Yes (Hospitalization)
  Sender: FDA-Public Use
  Company Number: US-B.I. PHARMACEUTICALS,INC./RIDGEFIELD-2013-BI-02097BP

PATIENT
  Sex: Male
  Weight: 88.45 kg

DRUGS (6)
  1. PRADAXA [Suspect]
     Indication: ANTICOAGULANT THERAPY
     Route: 065
     Dates: start: 20110114, end: 20110126
  2. PRADAXA [Suspect]
     Indication: ATRIAL FIBRILLATION
  3. ASPIRIN [Concomitant]
     Route: 065
     Dates: end: 20110126
  4. MULTIVITAMIN [Concomitant]
     Route: 065
  5. SYNTHROID [Concomitant]
     Route: 065
     Dates: start: 2005
  6. UROXATRAC [Concomitant]
     Route: 065
     Dates: start: 2006

REACTIONS (2)
  - Gastrointestinal haemorrhage [Unknown]
  - Haemorrhagic anaemia [Unknown]
